FAERS Safety Report 7489051-0 (Version None)
Quarter: 2011Q2

REPORT INFORMATION
  Report Type: 
  Country: None (occurrence: None)
  Receive Date: 20110518
  Receipt Date: 20110506
  Transmission Date: 20111010
  Serious: Yes (Other)
  Sender: FDA-Public Use
  Company Number: GB-ELI_LILLY_AND_COMPANY-GB201105002179

PATIENT
  Age: 49 Year
  Sex: Female

DRUGS (1)
  1. BYETTA [Suspect]

REACTIONS (1)
  - TRANSAMINASES INCREASED [None]
